FAERS Safety Report 22333529 (Version 1)
Quarter: 2023Q2

REPORT INFORMATION
  Report Type: Spontaneous
  Country: GB (occurrence: GB)
  Receive Date: 20230517
  Receipt Date: 20230517
  Transmission Date: 20230721
  Serious: Yes (Life-Threatening, Disabling, Other)
  Sender: FDA-Public Use
  Company Number: None

PATIENT
  Age: 28 Year
  Sex: Female
  Weight: 76 kg

DRUGS (13)
  1. CANDESARTAN [Suspect]
     Active Substance: CANDESARTAN
     Indication: Product used for unknown indication
     Dosage: 2 MILLIGRAM
     Route: 065
  2. AMOXICILLIN [Concomitant]
     Active Substance: AMOXICILLIN
     Dosage: 1 DOSAGE FORM, TID (08:00-1, 16:00-1, 00:00-1)
     Route: 065
     Dates: start: 20230429
  3. ASPIRIN [Concomitant]
     Active Substance: ASPIRIN
     Dosage: 0.5 DOSAGE FORM
     Route: 065
     Dates: start: 20230301, end: 20230503
  4. CEPHALEXIN [Concomitant]
     Active Substance: CEPHALEXIN
     Dosage: 1 DOSAGE FORM, TID
     Route: 065
     Dates: start: 20230322, end: 20230329
  5. BECLOMETHASONE DIPROPIONATE [Concomitant]
     Active Substance: BECLOMETHASONE DIPROPIONATE
     Dosage: 3 DOSAGE FORM (ACTUATION)
     Route: 065
     Dates: start: 20230428, end: 20230429
  6. AMOXICILLIN\CLAVULANATE POTASSIUM [Concomitant]
     Active Substance: AMOXICILLIN\CLAVULANATE POTASSIUM
     Indication: Pyelonephritis acute
     Dosage: 1 DOSAGE FORM
     Route: 065
     Dates: start: 20230406, end: 20230413
  7. COCODAMOL [Concomitant]
     Active Substance: ACETAMINOPHEN\CODEINE PHOSPHATE
     Dosage: TAKE 1 OR 2
     Route: 065
     Dates: start: 20230406, end: 20230420
  8. CODEINE PHOSPHATE [Concomitant]
     Active Substance: CODEINE PHOSPHATE
     Dosage: 1-2
     Route: 065
     Dates: start: 20230428, end: 20230429
  9. FOLIC ACID [Concomitant]
     Active Substance: FOLIC ACID
     Dosage: 1 DOSAGE FORM, QD (CYCLICAL)
     Route: 065
     Dates: start: 20221214, end: 20230503
  10. ACETAMINOPHEN [Concomitant]
     Active Substance: ACETAMINOPHEN
     Dosage: 1 DOSAGE FORM
     Route: 065
     Dates: start: 20230429
  11. PROGESTERONE [Concomitant]
     Active Substance: PROGESTERONE
     Dosage: 1 DOSAGE FORM, BID (UNTIL 16 WEEKS)
     Route: 065
     Dates: start: 20230309, end: 20230323
  12. ALBUTEROL [Concomitant]
     Active Substance: ALBUTEROL
     Dosage: 2 DOSAGE FORM ((AS NECESSARY)
     Route: 055
     Dates: start: 20230414, end: 20230421
  13. TINZAPARIN [Concomitant]
     Active Substance: TINZAPARIN
     Dosage: 12,000 UNIT
     Route: 065
     Dates: start: 20221219, end: 20230503

REACTIONS (1)
  - Paralysis [Unknown]
